FAERS Safety Report 6492993-6 (Version None)
Quarter: 2009Q4

REPORT INFORMATION
  Report Type: 
  Country: None (occurrence: None)
  Receive Date: 20091211
  Receipt Date: 20091211
  Transmission Date: 20100525
  Serious: No
  Sender: FDA-Public Use
  Company Number: None

PATIENT
  Age: 71 Year
  Sex: Male

DRUGS (1)
  1. AMLODIPINE [Suspect]
     Dosage: 10 MG BID PO
     Route: 048
     Dates: start: 20090515, end: 20090611

REACTIONS (1)
  - RENAL FAILURE ACUTE [None]
